FAERS Safety Report 21176602 (Version 1)
Quarter: 2022Q3

REPORT INFORMATION
  Report Type: Spontaneous
  Country: US (occurrence: None)
  Receive Date: 20220804
  Receipt Date: 20220804
  Transmission Date: 20221027
  Serious: No
  Sender: FDA-Public Use
  Company Number: None

PATIENT
  Age: 70 Year
  Sex: Male
  Weight: 132.09 kg

DRUGS (12)
  1. ABIRATERONE [Suspect]
     Active Substance: ABIRATERONE
     Indication: Prostate cancer
     Dosage: FREQUENCY : DAILY;?
     Route: 048
     Dates: start: 20220210
  2. FERRPUS SULFATE [Concomitant]
  3. IBUPROFEN [Concomitant]
     Active Substance: IBUPROFEN
  4. LUPRON [Concomitant]
     Active Substance: LEUPROLIDE ACETATE
  5. MAGNESOUM [Concomitant]
  6. MS CONTIN [Concomitant]
     Active Substance: MORPHINE SULFATE
  7. NORCO [Concomitant]
     Active Substance: ACETAMINOPHEN\HYDROCODONE BITARTRATE
  8. POTASSIUM CHLORIDER ER [Concomitant]
  9. PREDNISONE [Concomitant]
     Active Substance: PREDNISONE
  10. VITAMIN B12 [Concomitant]
     Active Substance: CYANOCOBALAMIN
  11. VITAMIN D [Concomitant]
     Active Substance: VITAMIN D NOS
  12. XGEVA [Concomitant]
     Active Substance: DENOSUMAB

REACTIONS (2)
  - Drug ineffective [None]
  - Disease progression [None]
